FAERS Safety Report 17252039 (Version 1)
Quarter: 2020Q1

REPORT INFORMATION
  Report Type: Spontaneous
  Country: JP (occurrence: JP)
  Receive Date: 20200109
  Receipt Date: 20200109
  Transmission Date: 20200409
  Serious: Yes (Other)
  Sender: FDA-Public Use
  Company Number: JP-TEVA-2020-JP-1166663

PATIENT
  Age: 74 Year
  Sex: Male

DRUGS (9)
  1. OXALIPLATIN. [Suspect]
     Active Substance: OXALIPLATIN
     Indication: COLON CANCER STAGE IV
     Dosage: 130 MG/M 2 ON DAY 1
     Route: 065
  2. IRINOTECAN [Suspect]
     Active Substance: IRINOTECAN
     Dosage: 150 MG/M 2 ON DAY 1 ON A BIWEEKLY CYCLE DURING THE THIRD LINE CHEMOTHERAPY
     Route: 065
  3. BEVACIZUMAB. [Suspect]
     Active Substance: BEVACIZUMAB
     Dosage: 5 MG/KG BODY WEIGHT ON DAYS 1 AND 15 DURING IRIS REGIMEN
     Route: 065
  4. POLAPREZINC [Suspect]
     Active Substance: POLAPREZINC
     Indication: DYSGEUSIA
     Route: 065
  5. CAPECITABINE. [Suspect]
     Active Substance: CAPECITABINE
     Indication: COLON CANCER STAGE IV
     Dosage: 1500 MG/KG BODY WEIGHT TWICE DAILY FOR 2 WEEKS ON A TRIWEEKLY CYCLE
     Route: 048
  6. PANITUMUMAB [Suspect]
     Active Substance: PANITUMUMAB
     Indication: COLON CANCER STAGE IV
     Dosage: 6 MG/KG BODY WEIGHT ON DAY 1 ON A BIWEEKLY CYCLE DURING THE THIRD LINE CHEMOTHERAPY
     Route: 065
  7. BEVACIZUMAB. [Suspect]
     Active Substance: BEVACIZUMAB
     Indication: COLON CANCER STAGE IV
     Dosage: 7.5 MG/KG BODY WEIGHT ON DAY 1 FOR 7 COURSES FOR 5 MONTHS DURING FIRST-LINE CHEMOTHERAPY
     Route: 065
  8. TS-1 [Suspect]
     Active Substance: GIMERACIL\OTERACIL\TEGAFUR
     Indication: COLON CANCER STAGE IV
     Dosage: 50 MG/KG BODY WEIGHT TWICE DAILY FOR 2 WEEKS ; FOLLOWED BY 2 WEEKS OF REST
     Route: 048
  9. IRINOTECAN [Suspect]
     Active Substance: IRINOTECAN
     Indication: COLON CANCER STAGE IV
     Dosage: 100 MG/M 2 ON DAYS 1 AND 15 DURING SECOND-LINE CHEMOTHERAPY (IRIS REGIMEN)
     Route: 065

REACTIONS (4)
  - Carbohydrate antigen 19-9 increased [Recovering/Resolving]
  - Neuropathy peripheral [Unknown]
  - Deep vein thrombosis [Unknown]
  - Dysgeusia [Unknown]
